FAERS Safety Report 20494752 (Version 1)
Quarter: 2022Q1

REPORT INFORMATION
  Report Type: Spontaneous
  Country: GB (occurrence: GB)
  Receive Date: 20220221
  Receipt Date: 20220221
  Transmission Date: 20220423
  Serious: Yes (Other)
  Sender: FDA-Public Use
  Company Number: GB-CELGENE-GBR-20220204169

PATIENT
  Age: 80 Year
  Sex: Male

DRUGS (3)
  1. FEDRATINIB [Suspect]
     Active Substance: FEDRATINIB
     Indication: Myelofibrosis
     Dosage: 400 MILLIGRAM
     Route: 048
     Dates: end: 202202
  2. ONDANSETRON [Concomitant]
     Active Substance: ONDANSETRON
     Indication: Product used for unknown indication
     Route: 065
  3. LOPERAMIDE [Concomitant]
     Active Substance: LOPERAMIDE
     Indication: Product used for unknown indication
     Route: 065

REACTIONS (2)
  - Renal impairment [Recovered/Resolved]
  - Hypersensitivity [Unknown]

NARRATIVE: CASE EVENT DATE: 20220117
